FAERS Safety Report 5340782-8 (Version None)
Quarter: 2007Q2

REPORT INFORMATION
  Report Type: 
  Country: None (occurrence: None)
  Receive Date: 20070405
  Receipt Date: 20070130
  Transmission Date: 20071010
  Serious: No
  Sender: FDA-Public Use
  Company Number: US200701006260

PATIENT
  Age: 16 Year
  Sex: Female

DRUGS (1)
  1. CYMBALTA [Suspect]
     Indication: DEPRESSION
     Dosage: 60 MG
     Dates: start: 20070101, end: 20070126

REACTIONS (7)
  - CRYING [None]
  - DIZZINESS [None]
  - MALAISE [None]
  - MYDRIASIS [None]
  - OCULOGYRATION [None]
  - SOMNOLENCE [None]
  - TACHYCARDIA [None]
